FAERS Safety Report 9613272 (Version 1)
Quarter: 2013Q4

REPORT INFORMATION
  Report Type: Spontaneous
  Country: DE (occurrence: BR)
  Receive Date: 20131010
  Receipt Date: 20131010
  Transmission Date: 20140711
  Serious: Yes (Hospitalization)
  Sender: FDA-Public Use
  Company Number: BR-FRI-1000049880

PATIENT
  Age: 64 Year
  Sex: Male

DRUGS (1)
  1. ROFLUMILAST [Suspect]
     Route: 048
     Dates: start: 201304, end: 20130911

REACTIONS (2)
  - Condition aggravated [Unknown]
  - Weight decreased [Unknown]
